FAERS Safety Report 10521577 (Version 3)
Quarter: 2014Q4

REPORT INFORMATION
  Report Type: Spontaneous
  Country: US (occurrence: None)
  Receive Date: 20141014
  Receipt Date: 20141021
  Transmission Date: 20150528
  Serious: Yes (Death)
  Sender: FDA-Public Use
  Company Number: 2014045470

PATIENT
  Age: 80 Year
  Sex: Male

DRUGS (1)
  1. STIMATE [Suspect]
     Active Substance: DESMOPRESSIN ACETATE
     Indication: VON WILLEBRAND^S DISEASE
     Dosage: 1.5 MG/MLONE SPRAY EACH NOSTRIL AS NEEDED NASAL
     Dates: start: 20131129, end: 20140226

REACTIONS (1)
  - Lymphoma [None]

NARRATIVE: CASE EVENT DATE: 20140702
